FAERS Safety Report 8886231 (Version 2)
Quarter: 2012Q4

REPORT INFORMATION
  Report Type: 
  Country: IT (occurrence: IT)
  Receive Date: 20121105
  Receipt Date: 20121112
  Transmission Date: 20130627
  Serious: Yes (Death, Hospitalization)
  Sender: FDA-Public Use
  Company Number: IT-AMGEN-ITASP2012069530

PATIENT
  Age: 57 Year
  Sex: Female

DRUGS (10)
  1. NEUPOGEN [Suspect]
     Indication: LEUKOPENIA
     Dosage: 300 mug, qd
     Dates: start: 20050420, end: 20050421
  2. ZYVOXID [Suspect]
     Indication: ACUTE ENDOCARDITIS
     Dosage: 1200 mg, qd
     Route: 048
     Dates: start: 20050404, end: 20050422
  3. EPREX [Suspect]
     Indication: ANAEMIA OF CHRONIC DISEASE
     Dosage: 40000 IU, one time dose
     Route: 058
     Dates: start: 20050420, end: 20050420
  4. CARDIOASPIRIN [Concomitant]
     Dosage: 100 mg, UNK
     Dates: start: 20050310, end: 20050422
  5. LANSOX [Concomitant]
     Dosage: 15 mg, UNK
     Dates: start: 20050310, end: 20050422
  6. BLOPRESID [Concomitant]
     Dosage: 16/12.5 mg
  7. ALDACTONE                          /00006201/ [Concomitant]
     Dosage: 25 mg, UNK
     Dates: start: 20050419, end: 20050421
  8. ZYLORIC [Concomitant]
     Dosage: 300 mg, UNK
     Dates: start: 20050419, end: 20050421
  9. LASIX                              /00032601/ [Concomitant]
     Dosage: 25 mg, UNK
     Dates: start: 20050419, end: 20050421
  10. LOPRESOR                           /00376902/ [Concomitant]
     Dosage: 100 mg, UNK
     Dates: start: 20050420, end: 20050421

REACTIONS (7)
  - Death [Fatal]
  - Lactic acidosis [Unknown]
  - Agitation [Unknown]
  - Back pain [Unknown]
  - Vomiting [Unknown]
  - Pyrexia [Unknown]
  - Hyperventilation [Unknown]
